FAERS Safety Report 13392742 (Version 1)
Quarter: 2017Q1

REPORT INFORMATION
  Report Type: Spontaneous
  Country: US (occurrence: US)
  Receive Date: 20170331
  Receipt Date: 20170331
  Transmission Date: 20170429
  Serious: No
  Sender: FDA-Public Use
  Company Number: US-MYLANLABS-2016M1046644

PATIENT
  Sex: Female
  Weight: 108.84 kg

DRUGS (1)
  1. FENTANYL TRANSDERMAL SYSTEM [Suspect]
     Active Substance: FENTANYL
     Indication: ROAD TRAFFIC ACCIDENT
     Dosage: 25 ?G, QH, CHANGE Q72H
     Route: 062
     Dates: start: 20160730

REACTIONS (1)
  - Night sweats [Unknown]
